FAERS Safety Report 5473923-2 (Version None)
Quarter: 2007Q4

REPORT INFORMATION
  Report Type: 
  Country: None (occurrence: None)
  Receive Date: 20071001
  Receipt Date: 20070921
  Transmission Date: 20080405
  Serious: Yes (Hospitalization, Other)
  Sender: FDA-Public Use
  Company Number: US-PFIZER INC-2007079850

PATIENT
  Age: 48 Year
  Sex: Male

DRUGS (3)
  1. LIPITOR [Suspect]
     Indication: LOW DENSITY LIPOPROTEIN
     Route: 048
     Dates: start: 20061201, end: 20070901
  2. LYRICA [Interacting]
     Indication: HEADACHE
     Dates: start: 20070901, end: 20070901
  3. OXYCODONE HCL [Concomitant]

REACTIONS (8)
  - BLOOD CREATINE PHOSPHOKINASE INCREASED [None]
  - DRUG INTERACTION [None]
  - DRUG LEVEL INCREASED [None]
  - FEELING ABNORMAL [None]
  - HEADACHE [None]
  - NEUROPATHY [None]
  - PAIN IN EXTREMITY [None]
  - RHABDOMYOLYSIS [None]
